FAERS Safety Report 9626993 (Version 1)
Quarter: 2013Q4

REPORT INFORMATION
  Report Type: Spontaneous
  Country: IT (occurrence: IT)
  Receive Date: 20131016
  Receipt Date: 20131016
  Transmission Date: 20140711
  Serious: Yes (Hospitalization)
  Sender: FDA-Public Use
  Company Number: IT-TEVA-437027ISR

PATIENT
  Age: 83 Year
  Sex: Male

DRUGS (11)
  1. CARVEDILOLO [Suspect]
     Dosage: 250 MILLIGRAM DAILY;
     Route: 048
     Dates: start: 20130601, end: 20130918
  2. LASIX 25MG [Suspect]
     Dosage: 4 DOSAGE FORMS DAILY;
     Route: 048
     Dates: start: 20130601, end: 20130918
  3. MICARDIS 20MG [Suspect]
     Indication: HYPERTENSION
     Dosage: 1 DOSAGE FORMS DAILY;
     Route: 048
     Dates: start: 20130101, end: 20130918
  4. ALDACTONE 25MG [Suspect]
     Dosage: 1 DOSAGE FORMS DAILY;
     Route: 048
     Dates: start: 20130101, end: 20130918
  5. AVODART [Concomitant]
  6. ZYLORIC [Concomitant]
     Dosage: DIVISIBLE TABLET
  7. TAVOR 1MG [Concomitant]
  8. COUMADIN 5MG [Concomitant]
  9. LANSOX [Concomitant]
  10. AMIODARONE [Concomitant]
     Dates: start: 20080101
  11. ROSUVASTATINA SALE DI CALCIO [Concomitant]

REACTIONS (4)
  - Dehydration [Recovering/Resolving]
  - Hypotension [Recovering/Resolving]
  - Syncope [Recovering/Resolving]
  - Renal failure acute [Recovering/Resolving]
